FAERS Safety Report 10207829 (Version 1)
Quarter: 2014Q2

REPORT INFORMATION
  Report Type: Spontaneous
  Country: US (occurrence: None)
  Receive Date: 20140529
  Receipt Date: 20140529
  Transmission Date: 20141212
  Serious: No
  Sender: FDA-Public Use
  Company Number: None

PATIENT
  Age: 31 Year
  Sex: Female
  Weight: 69.4 kg

DRUGS (1)
  1. LORATADINE 10 MG 612 [Suspect]
     Indication: SEASONAL ALLERGY
     Dosage: ONCE DAILY TAKEN BY MOUTH
     Route: 048

REACTIONS (3)
  - Palpitations [None]
  - Fatigue [None]
  - Extrasystoles [None]
